FAERS Safety Report 8144677-6 (Version None)
Quarter: 2012Q1

REPORT INFORMATION
  Report Type: 
  Country: None (occurrence: None)
  Receive Date: 20120217
  Receipt Date: 20120207
  Transmission Date: 20120608
  Serious: Yes (Hospitalization)
  Sender: FDA-Public Use
  Company Number: US-JNJFOC-20120204977

PATIENT
  Sex: Female
  Weight: 79.38 kg

DRUGS (14)
  1. REMICADE [Suspect]
     Route: 042
  2. OMEPRAZOLE [Concomitant]
     Indication: ABDOMINAL DISCOMFORT
     Route: 048
  3. ZOLOFT [Concomitant]
     Indication: ANXIETY
     Route: 048
  4. KLONOPIN [Concomitant]
     Indication: ANXIETY
     Route: 048
  5. KLONOPIN [Concomitant]
     Indication: DEPRESSION
     Route: 048
  6. ZOLOFT [Concomitant]
     Indication: DEPRESSION
     Route: 048
  7. LANTUS [Concomitant]
     Indication: TYPE 2 DIABETES MELLITUS
     Dosage: 10-30 UNITS
     Route: 058
  8. REMICADE [Suspect]
     Route: 042
  9. REMICADE [Suspect]
     Route: 042
     Dates: end: 20100101
  10. HUMALOG [Concomitant]
     Indication: TYPE 2 DIABETES MELLITUS
     Dosage: SLIDING SCALE WITH EACH MEAL
     Route: 058
  11. AMBIEN [Concomitant]
     Indication: SLEEP DISORDER
     Route: 048
  12. NORTRIPTYLINE HCL [Concomitant]
     Indication: RESTLESS LEGS SYNDROME
     Route: 048
  13. REMICADE [Suspect]
     Indication: CROHN'S DISEASE
     Route: 042
  14. HYDROCODONE [Concomitant]
     Indication: PAIN
     Route: 048

REACTIONS (16)
  - THERAPEUTIC RESPONSE DECREASED [None]
  - MINERAL DEFICIENCY [None]
  - ANXIETY [None]
  - DECREASED APPETITE [None]
  - DEHYDRATION [None]
  - ACIDOSIS [None]
  - DEPRESSION [None]
  - UNEVALUABLE EVENT [None]
  - OESOPHAGEAL DISORDER [None]
  - ABNORMAL LOSS OF WEIGHT [None]
  - ANAL FISTULA [None]
  - CROHN'S DISEASE [None]
  - INTESTINAL OBSTRUCTION [None]
  - INTESTINAL STENOSIS [None]
  - FISTULA [None]
  - NAUSEA [None]
